FAERS Safety Report 24421382 (Version 1)
Quarter: 2024Q4

REPORT INFORMATION
  Report Type: Spontaneous
  Country: US (occurrence: US)
  Receive Date: 20241010
  Receipt Date: 20241010
  Transmission Date: 20250114
  Serious: Yes (Disabling, Other)
  Sender: SANDOZ
  Company Number: US-002147023-NVSC2022US256964

PATIENT
  Age: 60 Year
  Sex: Female
  Weight: 54.422 kg

DRUGS (2)
  1. RECLAST [Suspect]
     Active Substance: ZOLEDRONIC ACID
     Indication: Osteoporosis
     Dosage: UNK
     Route: 042
     Dates: start: 20221024, end: 20221024
  2. LEXAPRO [Concomitant]
     Active Substance: ESCITALOPRAM OXALATE
     Indication: Irritable bowel syndrome
     Dosage: 10 MG
     Route: 065

REACTIONS (4)
  - Eyelid disorder [Recovered/Resolved with Sequelae]
  - Myalgia [Recovered/Resolved]
  - Arthralgia [Recovered/Resolved]
  - Asthenia [Recovered/Resolved]

NARRATIVE: CASE EVENT DATE: 20221025
